FAERS Safety Report 22248954 (Version 1)
Quarter: 2023Q2

REPORT INFORMATION
  Report Type: Spontaneous
  Country: DE (occurrence: DE)
  Receive Date: 20230425
  Receipt Date: 20230425
  Transmission Date: 20230721
  Serious: Yes (Other)
  Sender: FDA-Public Use
  Company Number: None

PATIENT
  Sex: Female

DRUGS (2)
  1. FINGOLIMOD [Suspect]
     Active Substance: FINGOLIMOD
     Indication: Relapsing-remitting multiple sclerosis
     Dosage: 0.5 MILLIGRAM (CAPSULE, HARD)
     Route: 065
     Dates: start: 2014
  2. FINGOLIMOD [Suspect]
     Active Substance: FINGOLIMOD
     Dosage: 1.5 MILLIGRAM (CAPSULE, HARD) OD
     Route: 065
     Dates: end: 202301

REACTIONS (2)
  - Lymphopenia [Unknown]
  - Liver function test increased [Not Recovered/Not Resolved]

NARRATIVE: CASE EVENT DATE: 20230101
